FAERS Safety Report 9286376 (Version 1)
Quarter: 2013Q2

REPORT INFORMATION
  Report Type: Spontaneous
  Country: US (occurrence: US)
  Receive Date: 20130513
  Receipt Date: 20130513
  Transmission Date: 20140414
  Serious: No
  Sender: FDA-Public Use
  Company Number: US-BAYER-2013-058946

PATIENT
  Age: 19 Year
  Sex: Female
  Weight: 78.91 kg

DRUGS (2)
  1. ALEVE TABLET [Suspect]
     Indication: PAIN
     Dosage: 2 DF, ONCE
     Route: 048
     Dates: start: 20130502
  2. TYLENOL [PARACETAMOL] [Concomitant]
     Dosage: UNK UNK, PRN

REACTIONS (2)
  - Throat irritation [Recovered/Resolved]
  - Eye swelling [Recovered/Resolved]
